FAERS Safety Report 9816414 (Version 1)
Quarter: 2014Q1

REPORT INFORMATION
  Report Type: Spontaneous
  Country: US (occurrence: US)
  Receive Date: 20140114
  Receipt Date: 20140114
  Transmission Date: 20141002
  Serious: No
  Sender: FDA-Public Use
  Company Number: US-TARO-2013P1018625

PATIENT
  Age: 81 Year
  Sex: Male
  Weight: 65.77 kg

DRUGS (4)
  1. DESOXIMETASONE CREAM USP 0.25% [Suspect]
     Indication: RASH
     Route: 061
     Dates: start: 201307
  2. HIGH BLOOD PRESSURE MEDICATION [Concomitant]
  3. WATER PILL [Concomitant]
  4. BLOOD THINNER [Concomitant]

REACTIONS (1)
  - Hypersensitivity [Not Recovered/Not Resolved]
